FAERS Safety Report 18570197 (Version 1)
Quarter: 2020Q4

REPORT INFORMATION
  Report Type: Spontaneous
  Country: US (occurrence: US)
  Receive Date: 20201202
  Receipt Date: 20201202
  Transmission Date: 20210114
  Serious: No
  Sender: FDA-Public Use
  Company Number: US-NOVEN PHARMACEUTICALS, INC.-2020US004025

PATIENT
  Sex: Female
  Weight: 113.38 kg

DRUGS (4)
  1. MINIVELLE [Suspect]
     Active Substance: ESTRADIOL
     Indication: OFF LABEL USE
     Dosage: 0.075 MG, 2/WEEK
     Route: 062
     Dates: start: 2019
  2. OTEZLA [Concomitant]
     Active Substance: APREMILAST
     Indication: PSORIASIS
  3. OTEZLA [Concomitant]
     Active Substance: APREMILAST
     Indication: ECZEMA
  4. MINIVELLE [Suspect]
     Active Substance: ESTRADIOL
     Indication: HYSTERECTOMY
     Dosage: UNK
     Route: 062

REACTIONS (4)
  - Inappropriate schedule of product administration [Unknown]
  - Application site irritation [Recovered/Resolved]
  - Application site urticaria [Recovered/Resolved]
  - Off label use [Not Recovered/Not Resolved]

NARRATIVE: CASE EVENT DATE: 2019
